FAERS Safety Report 16594129 (Version 2)
Quarter: 2019Q3

REPORT INFORMATION
  Report Type: Spontaneous
  Country: MY (occurrence: MY)
  Receive Date: 20190718
  Receipt Date: 20190830
  Transmission Date: 20191004
  Serious: Yes (Death, Life-Threatening)
  Sender: FDA-Public Use
  Company Number: MY-ABBVIE-19K-101-2858664-00

PATIENT

DRUGS (1)
  1. SURVANTA [Suspect]
     Active Substance: BERACTANT
     Indication: NEONATAL RESPIRATORY DISTRESS SYNDROME
     Route: 039

REACTIONS (1)
  - Pulmonary haemorrhage [Fatal]
